FAERS Safety Report 7875271-X (Version None)
Quarter: 2011Q4

REPORT INFORMATION
  Report Type: 
  Country: None (occurrence: None)
  Receive Date: 20111031
  Receipt Date: 20111024
  Transmission Date: 20120403
  Serious: Yes (Life-Threatening, Other)
  Sender: FDA-Public Use
  Company Number: SE-CELGENEUS-150-C5013-08010522

PATIENT
  Sex: Female
  Weight: 60 kg

DRUGS (8)
  1. LENALIDOMIDE [Suspect]
     Route: 048
     Dates: start: 20060109, end: 20071213
  2. DESFERASIROX [Concomitant]
     Indication: IRON OVERLOAD
     Route: 048
     Dates: start: 20070930
  3. TINZAPANNATRIUM [Concomitant]
     Indication: THROMBOSIS
     Route: 058
     Dates: start: 20071003
  4. AZACITIDINE [Concomitant]
     Route: 065
     Dates: start: 20080421, end: 20080425
  5. AZACITIDINE [Concomitant]
     Route: 065
     Dates: start: 20080211, end: 20080215
  6. MIDAZOLAM HCL [Concomitant]
     Route: 041
     Dates: start: 20071213, end: 20071213
  7. AZACITIDINE [Concomitant]
     Route: 065
     Dates: start: 20080114, end: 20080118
  8. AZACITIDINE [Concomitant]
     Route: 065
     Dates: start: 20080324, end: 20080328

REACTIONS (2)
  - MYELODYSPLASTIC SYNDROME TRANSFORMATION [None]
  - ACUTE MYELOID LEUKAEMIA [None]
